FAERS Safety Report 10162445 (Version 1)
Quarter: 2014Q2

REPORT INFORMATION
  Report Type: Spontaneous
  Country: FR (occurrence: FR)
  Receive Date: 20140509
  Receipt Date: 20140509
  Transmission Date: 20141212
  Serious: Yes (Hospitalization, Other)
  Sender: FDA-Public Use
  Company Number: FR-ASTRAZENECA-2014SE29602

PATIENT
  Age: 14 Year
  Sex: Male

DRUGS (2)
  1. LIDOCAINE [Suspect]
     Route: 030
  2. BENZATHINE BENZYLPENICILLIN [Suspect]
     Route: 030

REACTIONS (2)
  - Embolia cutis medicamentosa [Recovering/Resolving]
  - Testicular torsion [Unknown]
